FAERS Safety Report 10359986 (Version 1)
Quarter: 2014Q3

REPORT INFORMATION
  Report Type: Spontaneous
  Country: GB (occurrence: None)
  Receive Date: 20140730
  Receipt Date: 20140730
  Transmission Date: 20150326
  Serious: Yes (Other)
  Sender: FDA-Public Use
  Company Number: AUR-APL-2014-07941

PATIENT
  Age: 70 Year
  Sex: Male
  Weight: 90.5 kg

DRUGS (8)
  1. CLOPIDOGREL BISULFATE. [Concomitant]
     Active Substance: CLOPIDOGREL BISULFATE
  2. ENOXAPARIN [Concomitant]
     Active Substance: ENOXAPARIN
  3. LAXIDO (ELECTROLYTES NOS, MACROGOL 3350) [Concomitant]
  4. SIMVASTATIN. [Concomitant]
     Active Substance: SIMVASTATIN
  5. GABAPENTIN 300MG (GABAPENTIN) UNKNOWN, 300MG [Suspect]
     Active Substance: GABAPENTIN
     Indication: NEURALGIA
     Route: 048
     Dates: start: 20140703, end: 20140704
  6. ASPIRIN (ACETYLSALICYLIC ACID) [Concomitant]
     Active Substance: ASPIRIN
  7. LACRILUBE (PARAFFIN) [Concomitant]
  8. ZOPICLONE [Concomitant]
     Active Substance: ZOPICLONE

REACTIONS (3)
  - Dysarthria [None]
  - Convulsion [None]
  - Pallor [None]

NARRATIVE: CASE EVENT DATE: 20140703
